FAERS Safety Report 12589952 (Version 2)
Quarter: 2016Q4

REPORT INFORMATION
  Report Type: Spontaneous
  Country: US (occurrence: US)
  Receive Date: 20160725
  Receipt Date: 20161004
  Transmission Date: 20170207
  Serious: Yes (Other)
  Sender: FDA-Public Use
  Company Number: US-DSJP-DSU-2016-115175

PATIENT
  Age: 71 Year
  Sex: Female
  Weight: 69.84 kg

DRUGS (9)
  1. BENICAR [Suspect]
     Active Substance: OLMESARTAN MEDOXOMIL
     Indication: HYPERTENSION
     Dosage: 20 MG 1/2, QD
     Route: 048
     Dates: start: 201103, end: 201105
  2. BENICAR HCT [Suspect]
     Active Substance: HYDROCHLOROTHIAZIDE\OLMESARTAN MEDOXOMIL
     Indication: HYPERTENSION
     Dosage: UNK
     Dates: start: 201103
  3. BENICAR HCT [Suspect]
     Active Substance: HYDROCHLOROTHIAZIDE\OLMESARTAN MEDOXOMIL
     Dosage: 40/25MG, QD
     Route: 048
  4. ARMOUR THYROID [Concomitant]
     Active Substance: THYROID, PORCINE
     Indication: HYPERTHYROIDISM
     Dosage: 90 MG, QD
     Route: 048
  5. BENICAR [Suspect]
     Active Substance: OLMESARTAN MEDOXOMIL
     Dosage: 40 MG, UNK
  6. OMEPRAZOLE. [Concomitant]
     Active Substance: OMEPRAZOLE
     Indication: GASTROOESOPHAGEAL REFLUX DISEASE
     Dosage: 20 MG, QD
  7. BENICAR HCT [Suspect]
     Active Substance: HYDROCHLOROTHIAZIDE\OLMESARTAN MEDOXOMIL
     Dosage: 40/12.5MG, UNK
     Dates: start: 201105, end: 201501
  8. ACYCLOVIR                          /00587301/ [Concomitant]
     Active Substance: ACYCLOVIR
     Indication: HERPES VIRUS INFECTION
     Dosage: 800 MG, QD
     Route: 048
  9. BENICAR [Suspect]
     Active Substance: OLMESARTAN MEDOXOMIL
     Dosage: 20 MG, QD

REACTIONS (11)
  - Malabsorption [Not Recovered/Not Resolved]
  - Alopecia [Unknown]
  - Acute kidney injury [Not Recovered/Not Resolved]
  - Coeliac disease [Not Recovered/Not Resolved]
  - Medication error [Unknown]
  - Hiatus hernia [Unknown]
  - Oesophageal ulcer [Unknown]
  - Diverticulum [Unknown]
  - Irritable bowel syndrome [Unknown]
  - Dizziness [Unknown]
  - Oesophageal stenosis [Unknown]

NARRATIVE: CASE EVENT DATE: 201103
